FAERS Safety Report 6709302-7 (Version None)
Quarter: 2010Q2

REPORT INFORMATION
  Report Type: 
  Country: None (occurrence: None)
  Receive Date: 20100426
  Receipt Date: 20090507
  Transmission Date: 20101027
  Serious: Yes (Other)
  Sender: FDA-Public Use
  Company Number: TEST00209002527

PATIENT
  Age: 47 Year
  Sex: Male
  Weight: 100 kg

DRUGS (5)
  1. ANDROGEL [Suspect]
     Indication: BLOOD TESTOSTERONE FREE DECREASED
     Dosage: SEE IMAGE
     Dates: start: 20000101, end: 20050101
  2. ANDROGEL [Suspect]
     Indication: BLOOD TESTOSTERONE FREE DECREASED
     Dosage: SEE IMAGE
     Dates: start: 20050101, end: 20080101
  3. ANDROGEL [Suspect]
     Indication: BLOOD TESTOSTERONE FREE DECREASED
     Dosage: SEE IMAGE
     Dates: start: 20080101, end: 20081101
  4. ANDROGEL [Suspect]
     Indication: BLOOD TESTOSTERONE FREE DECREASED
     Dosage: SEE IMAGE
     Dates: start: 20090401, end: 20090401
  5. ANDROGEL [Suspect]
     Indication: BLOOD TESTOSTERONE FREE DECREASED
     Dosage: SEE IMAGE
     Dates: start: 20090501

REACTIONS (3)
  - DRUG INEFFECTIVE [None]
  - PROSTATE CANCER [None]
  - PROSTATIC SPECIFIC ANTIGEN INCREASED [None]
